FAERS Safety Report 7951280-7 (Version None)
Quarter: 2011Q4

REPORT INFORMATION
  Report Type: 
  Country: None (occurrence: None)
  Receive Date: 20111201
  Receipt Date: 20111121
  Transmission Date: 20120403
  Serious: Yes (Hospitalization, Other)
  Sender: FDA-Public Use
  Company Number: US-ABBOTT-11P-163-0850136-00

PATIENT
  Sex: Male
  Weight: 88.076 kg

DRUGS (17)
  1. KLONOPIN [Concomitant]
     Indication: STATUS EPILEPTICUS
  2. DILANTIN [Suspect]
     Dosage: 600MG DAILY, 300MG IN AM, 300MG IN PM
  3. KEPPRA [Concomitant]
     Indication: CONVULSION
  4. SYNTHROID [Suspect]
     Indication: PRODUCT USED FOR UNKNOWN INDICATION
     Route: 048
     Dates: start: 20100810
  5. DILANTIN [Suspect]
     Dosage: ALTERNATE WITH 450MG  AND 400MG AT NIGHT
     Route: 048
     Dates: start: 20080101, end: 20090101
  6. DILANTIN [Suspect]
     Dosage: 4 CAPSULES AT NIGHT DAILY
     Dates: start: 20040801, end: 20090101
  7. CAFFEINE CITRATE [Suspect]
     Indication: PRODUCT USED FOR UNKNOWN INDICATION
     Dates: start: 20100826
  8. ACETAMINOPHEN [Concomitant]
     Indication: INFLUENZA
  9. KEPPRA [Concomitant]
     Indication: LOSS OF CONSCIOUSNESS
  10. FLONASE [Concomitant]
     Indication: MULTIPLE ALLERGIES
  11. ACETAMINOPHEN [Concomitant]
     Indication: NASOPHARYNGITIS
  12. BENADRYL [Concomitant]
     Indication: MULTIPLE ALLERGIES
  13. BENADRYL [Concomitant]
     Indication: SEASONAL ALLERGY
  14. DILANTIN [Suspect]
     Dosage: 5 CAPSULES AT NIGHT, DAILY
     Route: 048
     Dates: start: 20090101
  15. KEPPRA [Concomitant]
     Indication: STATUS EPILEPTICUS
  16. KLONOPIN [Concomitant]
     Indication: LOSS OF CONSCIOUSNESS
  17. DILANTIN [Suspect]
     Indication: GRAND MAL CONVULSION
     Route: 048
     Dates: start: 19810101, end: 19820101

REACTIONS (1)
  - FATIGUE [None]
